FAERS Safety Report 7459832-8 (Version None)
Quarter: 2011Q2

REPORT INFORMATION
  Report Type: 
  Country: None (occurrence: None)
  Receive Date: 20110505
  Receipt Date: 20110502
  Transmission Date: 20111010
  Serious: Yes (Other)
  Sender: FDA-Public Use
  Company Number: US-MEDIMMUNE-MEDI-0013001

PATIENT
  Sex: Male

DRUGS (3)
  1. SYNAGIS [Suspect]
     Dates: start: 20110101, end: 20110301
  2. PREVNAR 13 [Concomitant]
  3. SYNAGIS [Suspect]
     Dates: start: 20100101

REACTIONS (2)
  - INJECTION SITE SWELLING [None]
  - NEOPLASM MALIGNANT [None]
